FAERS Safety Report 8273580-6 (Version None)
Quarter: 2012Q2

REPORT INFORMATION
  Report Type: 
  Country: None (occurrence: None)
  Receive Date: 20120409
  Receipt Date: 20120409
  Transmission Date: 20120825
  Serious: Yes (Other)
  Sender: FDA-Public Use
  Company Number: None

PATIENT
  Age: 79 Year
  Sex: Male
  Weight: 82 kg

DRUGS (1)
  1. DABIGATRAN [Suspect]
     Indication: ATRIAL FLUTTER
     Dosage: 150 MG BID PO
     Route: 048
     Dates: start: 20110518, end: 20110611

REACTIONS (2)
  - DYSPNOEA EXERTIONAL [None]
  - INSOMNIA [None]
